FAERS Safety Report 17939452 (Version 1)
Quarter: 2020Q2

REPORT INFORMATION
  Report Type: Spontaneous
  Country: CN (occurrence: CN)
  Receive Date: 20200624
  Receipt Date: 20200624
  Transmission Date: 20200714
  Serious: Yes (Other)
  Sender: FDA-Public Use
  Company Number: CN-PFIZER INC-2020239862

PATIENT
  Age: 3 Year
  Sex: Male
  Weight: 18 kg

DRUGS (5)
  1. BROMHEXINE HYDROCHLORIDE AND GLUCOSE INJECTION [Concomitant]
     Dosage: 90 ML
     Dates: start: 20200603
  2. SODIUM CHLORIDE + GLUCOSE [Concomitant]
     Dosage: 100 ML (4:1)
     Dates: start: 20200603
  3. CEFOTAXIME SODIUM [Concomitant]
     Active Substance: CEFOTAXIME SODIUM
     Dosage: 0.75 G, 2X/DAY
     Dates: start: 20200603
  4. SOLU-MEDROL [Suspect]
     Active Substance: METHYLPREDNISOLONE SODIUM SUCCINATE
     Indication: ASTHMA
  5. SOLU-MEDROL [Suspect]
     Active Substance: METHYLPREDNISOLONE SODIUM SUCCINATE
     Indication: BRONCHITIS
     Dosage: 35 MG, 2X/DAY
     Route: 041
     Dates: start: 20200603, end: 20200603

REACTIONS (2)
  - Rash maculo-papular [Recovered/Resolved]
  - Rash pruritic [Recovered/Resolved]

NARRATIVE: CASE EVENT DATE: 20200603
